FAERS Safety Report 15404456 (Version 1)
Quarter: 2018Q3

REPORT INFORMATION
  Report Type: Report from Study
  Country: BR (occurrence: BR)
  Receive Date: 20180919
  Receipt Date: 20180919
  Transmission Date: 20181010
  Serious: Yes (Other)
  Sender: FDA-Public Use
  Company Number: BR-SHIRE-BR201835167

PATIENT

DRUGS (2)
  1. ELAPRASE [Suspect]
     Active Substance: IDURSULFASE
     Indication: MUCOPOLYSACCHARIDOSIS II
     Dosage: 2 VIALS EVERY 7 DAYS
     Route: 042
     Dates: start: 20170925
  2. ELAPRASE [Suspect]
     Active Substance: IDURSULFASE
     Indication: OFF LABEL USE

REACTIONS (4)
  - Off label use [Unknown]
  - Hypersensitivity [Not Recovered/Not Resolved]
  - Pneumonia [Unknown]
  - Rhinitis [Unknown]

NARRATIVE: CASE EVENT DATE: 201806
